FAERS Safety Report 14200093 (Version 2)
Quarter: 2018Q4

REPORT INFORMATION
  Report Type: Spontaneous
  Country: US (occurrence: US)
  Receive Date: 20171117
  Receipt Date: 20181113
  Transmission Date: 20190204
  Serious: No
  Sender: FDA-Public Use
  Company Number: US-BAUSCH-BL-2016-027446

PATIENT
  Age: 54 Year
  Sex: Female
  Weight: 86.71 kg

DRUGS (3)
  1. NORITATE [Suspect]
     Active Substance: METRONIDAZOLE
     Indication: ROSACEA
     Dosage: APPLIED ONCE DAILY TO THE FACE
     Route: 061
     Dates: start: 201607, end: 2016
  2. MELOXICAM. [Concomitant]
     Active Substance: MELOXICAM
     Indication: INFLAMMATION
     Route: 048
  3. VERAPAMIL [Concomitant]
     Active Substance: VERAPAMIL HYDROCHLORIDE
     Indication: HYPERTENSION
     Route: 048

REACTIONS (2)
  - Acne [Recovering/Resolving]
  - Product quality issue [Unknown]

NARRATIVE: CASE EVENT DATE: 201610
